FAERS Safety Report 4379279-0 (Version None)
Quarter: 2004Q2

REPORT INFORMATION
  Report Type: 
  Country: None (occurrence: None)
  Receive Date: 20040610
  Receipt Date: 20040601
  Transmission Date: 20050107
  Serious: Yes (Other)
  Sender: FDA-Public Use
  Company Number: 2004017240

PATIENT
  Age: 48 Year
  Sex: Male

DRUGS (5)
  1. GEODON [Suspect]
     Indication: BIPOLAR DISORDER
     Dosage: 80 MG (80 MG, 1 IN 1 D), ORAL
     Route: 048
     Dates: start: 20031126, end: 20040204
  2. GEODON [Suspect]
     Indication: SCHIZOAFFECTIVE DISORDER
     Dosage: 80 MG (80 MG, 1 IN 1 D), ORAL
     Route: 048
     Dates: start: 20031126, end: 20040204
  3. FLUPHENAZINE DECANOATE (FLUPHENAZINE DECANOATE) [Concomitant]
  4. OXCARBAMAZEPINE (OXCARBAMAZEPINE) [Concomitant]
  5. BENZATROPINE MESILATE (BENZATROPINE MESILATE) [Concomitant]

REACTIONS (5)
  - DIZZINESS [None]
  - DIZZINESS POSTURAL [None]
  - DYSSTASIA [None]
  - LOSS OF CONSCIOUSNESS [None]
  - SYNCOPE [None]
